FAERS Safety Report 16017544 (Version 1)
Quarter: 2019Q2

REPORT INFORMATION
  Report Type: Spontaneous
  Country: US (occurrence: US)
  Receive Date: 20190228
  Receipt Date: 20190228
  Transmission Date: 20190711
  Serious: Yes (Life-Threatening)
  Sender: FDA-Public Use
  Company Number: None

PATIENT
  Age: 23 Year
  Sex: Female

DRUGS (3)
  1. TRIAMCINOLONE 0.5% OINT [Concomitant]
     Dates: start: 20190206
  2. BUPIVACAINE. [Suspect]
     Active Substance: BUPIVACAINE
     Indication: HYSTEROSCOPY
     Dosage: ?          OTHER FREQUENCY:ONCE;?
     Route: 019
     Dates: start: 20190226, end: 20190226
  3. MISOPROSTOL. [Concomitant]
     Active Substance: MISOPROSTOL
     Dates: start: 20190224, end: 20190226

REACTIONS (3)
  - Cardiac arrest [None]
  - Seizure like phenomena [None]
  - Drug hypersensitivity [None]

NARRATIVE: CASE EVENT DATE: 20190226
